FAERS Safety Report 8290096-1 (Version None)
Quarter: 2012Q2

REPORT INFORMATION
  Report Type: 
  Country: None (occurrence: None)
  Receive Date: 20120417
  Receipt Date: 20120411
  Transmission Date: 20120825
  Serious: Yes (Other)
  Sender: FDA-Public Use
  Company Number: US-PFIZER INC-2012060228

PATIENT
  Sex: Male
  Weight: 81.179 kg

DRUGS (2)
  1. ZOLOFT [Suspect]
     Dosage: UNK
     Route: 048
     Dates: start: 20111101, end: 20111101
  2. ZOLOFT [Suspect]
     Dosage: 20 MG, DAILY
     Route: 048
     Dates: start: 20111101, end: 20111101

REACTIONS (10)
  - DISTURBANCE IN ATTENTION [None]
  - PAIN IN EXTREMITY [None]
  - ABNORMAL DREAMS [None]
  - PAIN [None]
  - SOMNAMBULISM [None]
  - FEELING ABNORMAL [None]
  - NIGHTMARE [None]
  - DELUSION [None]
  - AMNESIA [None]
  - WEIGHT INCREASED [None]
